FAERS Safety Report 12456161 (Version 4)
Quarter: 2017Q1

REPORT INFORMATION
  Report Type: Report from Study
  Country: FR (occurrence: FR)
  Receive Date: 20160610
  Receipt Date: 20170110
  Transmission Date: 20170428
  Serious: Yes (Hospitalization, Other)
  Sender: FDA-Public Use
  Company Number: FR-ASTELLAS-2016US016853

PATIENT
  Age: 61 Year
  Sex: Male

DRUGS (15)
  1. PROGRAF [Suspect]
     Active Substance: TACROLIMUS\TACROLIMUS ANHYDROUS
     Indication: RENAL TRANSPLANT
     Route: 048
     Dates: start: 20151106, end: 20151112
  2. NEBIVOLOL. [Concomitant]
     Active Substance: NEBIVOLOL
     Indication: HYPERTENSION
     Route: 065
     Dates: start: 201510
  3. TACROLIMUS. [Suspect]
     Active Substance: TACROLIMUS
     Route: 048
     Dates: start: 20151202, end: 20151222
  4. TACROLIMUS. [Suspect]
     Active Substance: TACROLIMUS
     Route: 065
     Dates: start: 20160830
  5. ROSUVASTATINE [Concomitant]
     Active Substance: ROSUVASTATIN
     Indication: HYPERLIPIDAEMIA
     Route: 065
     Dates: start: 201512
  6. TACROLIMUS. [Suspect]
     Active Substance: TACROLIMUS
     Route: 065
     Dates: start: 20160210, end: 20160829
  7. MYFORTIC [Suspect]
     Active Substance: MYCOPHENOLATE SODIUM
     Route: 065
     Dates: start: 201604
  8. FLUINDIONE [Concomitant]
     Active Substance: FLUINDIONE
     Dosage: 1 1/4 TABLET IN THE EVENING
     Route: 065
  9. FLUINDIONE [Concomitant]
     Active Substance: FLUINDIONE
     Indication: ATRIAL FIBRILLATION
     Dosage: 1 DF IN THE EVENING
     Route: 065
     Dates: start: 20151103
  10. TACROLIMUS. [Suspect]
     Active Substance: TACROLIMUS
     Indication: RENAL TRANSPLANT
     Dosage: 9 MG, ONCE DAILY (1 HOUR BEFORE AND 2 HOUR AFTER MEAL)
     Route: 048
     Dates: start: 20151113, end: 20151117
  11. TACROLIMUS. [Suspect]
     Active Substance: TACROLIMUS
     Route: 048
     Dates: start: 20151223, end: 20160209
  12. SIMULECT [Concomitant]
     Active Substance: BASILIXIMAB
     Indication: IMMUNOSUPPRESSION
     Dosage: 2 INJECTIONS, UNKNOWN FREQ.
     Route: 065
  13. MYFORTIC [Suspect]
     Active Substance: MYCOPHENOLATE SODIUM
     Indication: IMMUNOSUPPRESSION
     Route: 065
     Dates: start: 20151031, end: 20160110
  14. MYFORTIC [Suspect]
     Active Substance: MYCOPHENOLATE SODIUM
     Route: 065
     Dates: start: 201601, end: 201601
  15. TACROLIMUS. [Suspect]
     Active Substance: TACROLIMUS
     Route: 065
     Dates: start: 20151118, end: 20151201

REACTIONS (8)
  - Bronchitis [Recovered/Resolved]
  - Neutropenia [Recovered/Resolved]
  - Nephrectomy [Recovered/Resolved]
  - International normalised ratio abnormal [Recovered/Resolved]
  - Overdose [Unknown]
  - Hypercreatininaemia [Recovered/Resolved]
  - Dyslipidaemia [Recovering/Resolving]
  - Femoral neck fracture [Recovered/Resolved]

NARRATIVE: CASE EVENT DATE: 20151113
